FAERS Safety Report 24728135 (Version 1)
Quarter: 2024Q4

REPORT INFORMATION
  Report Type: Spontaneous
  Country: US (occurrence: US)
  Receive Date: 20241212
  Receipt Date: 20241212
  Transmission Date: 20250114
  Serious: No
  Sender: MYLAN
  Company Number: US-MYLANLABS-2024M1087916

PATIENT
  Weight: 121.11 kg

DRUGS (1)
  1. LYRICA [Suspect]
     Active Substance: PREGABALIN
     Indication: Occipital neuralgia
     Dosage: 50 MILLIGRAM, BID
     Route: 065

REACTIONS (1)
  - Off label use [Unknown]
